FAERS Safety Report 9396229 (Version 1)
Quarter: 2013Q3

REPORT INFORMATION
  Report Type: Spontaneous
  Country: FR (occurrence: FR)
  Receive Date: 20130711
  Receipt Date: 20130711
  Transmission Date: 20140515
  Serious: Yes (Death, Hospitalization)
  Sender: FDA-Public Use
  Company Number: FR-PFIZER INC-2013203622

PATIENT
  Age: 67 Year
  Sex: Female

DRUGS (8)
  1. CELEBREX [Suspect]
     Dosage: 200 MG, 1X/DAY
     Route: 048
     Dates: start: 20130311, end: 20130511
  2. CARDENSIEL [Concomitant]
     Dosage: UNK
  3. LEVOTHYROX [Concomitant]
     Dosage: UNK
  4. STILNOX [Concomitant]
     Dosage: UNK
  5. FENOFIBRATE [Concomitant]
     Dosage: UNK
  6. ALDACTONE [Concomitant]
     Dosage: UNK
  7. CERIS [Concomitant]
     Dosage: UNK
  8. TARDYFERON [Concomitant]
     Dosage: UNK

REACTIONS (2)
  - Renal failure [Fatal]
  - Intestinal ischaemia [Fatal]
